FAERS Safety Report 7289230-1 (Version None)
Quarter: 2011Q1

REPORT INFORMATION
  Report Type: 
  Country: None (occurrence: None)
  Receive Date: 20110201
  Receipt Date: 20110111
  Transmission Date: 20110831
  Serious: Yes (Other)
  Sender: FDA-Public Use
  Company Number: FKO201100006

PATIENT
  Age: 76 Year
  Sex: Male

DRUGS (3)
  1. LEUCOVORIN CALCIUM [Suspect]
     Indication: COLON CANCER
  2. FLUOROURACIL [Suspect]
     Indication: COLON CANCER
  3. CAPECITABINE (CAPECITABINE) (MANUFACTURER UNKNOWN) [Suspect]
     Indication: COLON CANCER

REACTIONS (4)
  - PALMAR-PLANTAR ERYTHRODYSAESTHESIA SYNDROME [None]
  - RASH ERYTHEMATOUS [None]
  - GASTROINTESTINAL TOXICITY [None]
  - LEUKOCYTOCLASTIC VASCULITIS [None]
